FAERS Safety Report 5742721-4 (Version None)
Quarter: 2008Q2

REPORT INFORMATION
  Report Type: 
  Country: None (occurrence: None)
  Receive Date: 20080519
  Receipt Date: 20080515
  Transmission Date: 20081010
  Serious: Yes (Other)
  Sender: FDA-Public Use
  Company Number: B0520348A

PATIENT
  Sex: Female

DRUGS (3)
  1. PAXIL [Suspect]
     Indication: DRUG USE FOR UNKNOWN INDICATION
     Route: 048
  2. PAXIL [Suspect]
     Route: 048
     Dates: end: 20070701
  3. PAXIL [Suspect]
     Route: 048
     Dates: start: 20070701

REACTIONS (2)
  - CYANOSIS [None]
  - VASCULITIS [None]
